FAERS Safety Report 13766362 (Version 2)
Quarter: 2017Q3

REPORT INFORMATION
  Report Type: Report from Study
  Country: US (occurrence: US)
  Receive Date: 20170719
  Receipt Date: 20170728
  Transmission Date: 20171127
  Serious: Yes (Hospitalization, Other)
  Sender: FDA-Public Use
  Company Number: US-GILEAD-2017-0283703

PATIENT
  Age: 25 Year
  Sex: Female

DRUGS (3)
  1. FLOLAN [Concomitant]
     Active Substance: EPOPROSTENOL SODIUM
  2. AMBRISENTAN [Suspect]
     Active Substance: AMBRISENTAN
     Indication: PRODUCT USED FOR UNKNOWN INDICATION
     Dosage: 5 MG, QD
     Route: 065
     Dates: start: 20161010
  3. COUMADIN [Concomitant]
     Active Substance: WARFARIN SODIUM

REACTIONS (9)
  - Catheter site discharge [Unknown]
  - Device related infection [Unknown]
  - Pain [Unknown]
  - Drug hypersensitivity [Unknown]
  - Central venous catheterisation [Unknown]
  - Application site irritation [Unknown]
  - Dermatitis allergic [Unknown]
  - Catheter removal [Unknown]
  - Pyrexia [Unknown]
